FAERS Safety Report 8801209 (Version 2)
Quarter: 2015Q2

REPORT INFORMATION
  Report Type: Report from Study
  Country: US (occurrence: US)
  Receive Date: 20120921
  Receipt Date: 20150630
  Transmission Date: 20150821
  Serious: Yes (Death)
  Sender: FDA-Public Use
  Company Number: US-ROCHE-1103768

PATIENT
  Sex: Male

DRUGS (9)
  1. TAXOL [Concomitant]
     Active Substance: PACLITAXEL
     Route: 042
     Dates: start: 20050622
  2. ALOXI [Concomitant]
     Active Substance: PALONOSETRON HYDROCHLORIDE
     Route: 042
  3. AREDIA [Concomitant]
     Active Substance: PAMIDRONATE DISODIUM
  4. NEUPOGEN [Concomitant]
     Active Substance: FILGRASTIM
     Route: 065
  5. AVASTIN [Suspect]
     Active Substance: BEVACIZUMAB
     Indication: LUNG NEOPLASM MALIGNANT
  6. ARANESP [Concomitant]
     Active Substance: DARBEPOETIN ALFA
     Route: 065
  7. AVASTIN [Suspect]
     Active Substance: BEVACIZUMAB
     Indication: MALIGNANT RESPIRATORY TRACT NEOPLASM
     Dosage: 15 MG/KG, THERAPIES RECEIVED ON 13/JUL/2005, 10/AUG/2005, 01/SEP/2005,
     Route: 042
     Dates: start: 20050622
  8. CARBOPLATIN. [Concomitant]
     Active Substance: CARBOPLATIN
     Route: 042
  9. DECADRON [Concomitant]
     Active Substance: DEXAMETHASONE
     Route: 042

REACTIONS (25)
  - Stomatitis [Unknown]
  - Tremor [Unknown]
  - Hypoaesthesia [Unknown]
  - Rash [Unknown]
  - Muscular weakness [Unknown]
  - Nausea [Unknown]
  - Dysphagia [Unknown]
  - Death [Fatal]
  - Arthralgia [Unknown]
  - Pollakiuria [Unknown]
  - Fatigue [Unknown]
  - Epistaxis [Unknown]
  - Oropharyngeal pain [Unknown]
  - Dizziness [Unknown]
  - Diarrhoea [Unknown]
  - Syncope [Unknown]
  - Peripheral swelling [Unknown]
  - Cough [Unknown]
  - Pain in extremity [Unknown]
  - Pain [Unknown]
  - Paraesthesia [Unknown]
  - Nail disorder [Unknown]
  - Joint swelling [Unknown]
  - Off label use [Unknown]
  - Night sweats [Unknown]
